FAERS Safety Report 7797908-6 (Version None)
Quarter: 2011Q4

REPORT INFORMATION
  Report Type: 
  Country: None (occurrence: None)
  Receive Date: 20111005
  Receipt Date: 20110930
  Transmission Date: 20120403
  Serious: Yes (Other)
  Sender: FDA-Public Use
  Company Number: US-ABBOTT-11P-163-0860226-00

PATIENT
  Age: 36 Year
  Sex: Male

DRUGS (2)
  1. HUMIRA [Suspect]
     Indication: ARTHRITIS
     Route: 058
     Dates: start: 20110101
  2. HUMIRA [Suspect]
     Indication: PSORIASIS
     Route: 058
     Dates: start: 20100101, end: 20101101

REACTIONS (6)
  - MUSCLE INJURY [None]
  - ROTATOR CUFF SYNDROME [None]
  - PSORIASIS [None]
  - MUSCLE RUPTURE [None]
  - JOINT INJURY [None]
  - DRUG INEFFECTIVE [None]
